FAERS Safety Report 6424170-9 (Version None)
Quarter: 2009Q4

REPORT INFORMATION
  Report Type: 
  Country: None (occurrence: None)
  Receive Date: 20091029
  Receipt Date: 20091020
  Transmission Date: 20100525
  Serious: Yes (Disabling)
  Sender: FDA-Public Use
  Company Number: 2009011439

PATIENT
  Age: 37 Year
  Sex: Male
  Weight: 74 kg

DRUGS (1)
  1. MODAFINIL [Suspect]
     Indication: NARCOLEPSY
     Dosage: 400 MG (2 TABS IN MORNING; 1 TAB AT 12P + 4P), ORAL
     Route: 048
     Dates: start: 20010101

REACTIONS (5)
  - DRUG EFFECT DECREASED [None]
  - FATIGUE [None]
  - HYPERSOMNIA [None]
  - PRODUCT FORMULATION ISSUE [None]
  - SOMNOLENCE [None]
